FAERS Safety Report 12272764 (Version 11)
Quarter: 2021Q2

REPORT INFORMATION
  Report Type: Spontaneous
  Country: US (occurrence: US)
  Receive Date: 20160415
  Receipt Date: 20210511
  Transmission Date: 20210716
  Serious: Yes (Hospitalization)
  Sender: FDA-Public Use
  Company Number: US-PFIZER INC-2016190671

PATIENT
  Age: 35 Year
  Sex: Female

DRUGS (4)
  1. IBRANCE [Suspect]
     Active Substance: PALBOCICLIB
     Dosage: 125 MG, UNK
     Dates: start: 20150630, end: 2015
  2. IBRANCE [Suspect]
     Active Substance: PALBOCICLIB
     Indication: BREAST CANCER METASTATIC
     Dosage: 125 MG, CYCLIC
     Dates: start: 20150501, end: 2015
  3. LETROZOLE. [Suspect]
     Active Substance: LETROZOLE
     Indication: BREAST CANCER METASTATIC
     Dosage: 2.5 MG, UNK
     Dates: start: 20150501
  4. IBRANCE [Suspect]
     Active Substance: PALBOCICLIB
     Dosage: 125 MG, CYCLIC
     Dates: start: 20150713

REACTIONS (15)
  - Pyrexia [Unknown]
  - Influenza [Recovering/Resolving]
  - Headache [Unknown]
  - Infection [Unknown]
  - Blood count abnormal [Unknown]
  - Gait disturbance [Unknown]
  - Food poisoning [Unknown]
  - Fall [Unknown]
  - Increased tendency to bruise [Unknown]
  - Impaired healing [Unknown]
  - Nasopharyngitis [Unknown]
  - Hangnail [Unknown]
  - Weight increased [Unknown]
  - Fatigue [Recovering/Resolving]
  - Ligament sprain [Unknown]

NARRATIVE: CASE EVENT DATE: 20200203
